FAERS Safety Report 6712591-6 (Version None)
Quarter: 2010Q2

REPORT INFORMATION
  Report Type: 
  Country: None (occurrence: None)
  Receive Date: 20100505
  Receipt Date: 20100505
  Transmission Date: 20101027
  Serious: Yes (Hospitalization)
  Sender: FDA-Public Use
  Company Number: None

PATIENT
  Sex: Female
  Weight: 49.4421 kg

DRUGS (2)
  1. RECLAST [Suspect]
     Indication: OSTEOPOROSIS
     Dosage: 100CC Q YEARLY IV
     Route: 042
     Dates: start: 20080813
  2. RECLAST [Suspect]
     Indication: OSTEOPOROSIS
     Dosage: 100CC Q YEARLY IV
     Route: 042
     Dates: start: 20091020

REACTIONS (1)
  - CEREBROVASCULAR ACCIDENT [None]
